FAERS Safety Report 21763708 (Version 1)
Quarter: 2022Q4

REPORT INFORMATION
  Report Type: Spontaneous
  Country: CN (occurrence: CN)
  Receive Date: 20221222
  Receipt Date: 20221222
  Transmission Date: 20230112
  Serious: Yes (Other)
  Sender: FDA-Public Use
  Company Number: CN-NOVAST LABORATORIES INC.-2022NOV000333

PATIENT
  Age: 45 Year
  Sex: Female

DRUGS (8)
  1. FLUOROURACIL [Suspect]
     Active Substance: FLUOROURACIL
     Indication: Gestational trophoblastic tumour
     Dosage: (26-28) MG/(KG*D)
     Route: 065
     Dates: start: 20210727, end: 20210729
  2. FLUOROURACIL [Suspect]
     Active Substance: FLUOROURACIL
     Dosage: DAILY AMOUNT OF 25 MG/KG
     Route: 065
  3. FLUOROURACIL [Suspect]
     Active Substance: FLUOROURACIL
     Dosage: AVERAGE DAILY DOSE OF 24.55 MG/KG
     Route: 065
  4. FLUOROURACIL [Suspect]
     Active Substance: FLUOROURACIL
     Dosage: AVERAGE DAILY DOSE OF 25.46 MG/KG
     Route: 065
  5. ACTINOMYCIN D [Suspect]
     Active Substance: DACTINOMYCIN
     Indication: Gestational trophoblastic tumour
     Dosage: (4-6) MG/(KG*D)
     Route: 065
     Dates: start: 20210727, end: 20210729
  6. ACTINOMYCIN D [Suspect]
     Active Substance: DACTINOMYCIN
     Dosage: DAILY AMOUNT OF 5.91 MICROGRAM/KILOGRAM
     Route: 065
  7. ACTINOMYCIN D [Suspect]
     Active Substance: DACTINOMYCIN
     Dosage: AVERAGE DAILY DOSE OF 5.35 MICROGRAM/KILOGRAM
     Route: 065
  8. ACTINOMYCIN D [Suspect]
     Active Substance: DACTINOMYCIN
     Dosage: AVERAGE DAILY DOSE OF 5.56 MICROGRAM/KILOGRAM
     Route: 065

REACTIONS (1)
  - Erythema multiforme [Recovered/Resolved]
